FAERS Safety Report 24028916 (Version 1)
Quarter: 2024Q2

REPORT INFORMATION
  Report Type: Report from Study
  Country: EG (occurrence: EG)
  Receive Date: 20240628
  Receipt Date: 20240628
  Transmission Date: 20240715
  Serious: Yes (Death, Hospitalization, Other)
  Sender: FDA-Public Use
  Company Number: EG-TAKEDA-2023TUS083217

PATIENT
  Age: 23 Year
  Sex: Male

DRUGS (2)
  1. ADCETRIS [Suspect]
     Active Substance: BRENTUXIMAB VEDOTIN
     Indication: Hodgkin^s disease refractory
     Dosage: 3 DF, CYCLIC; 3 VIALS PER CYCLE Q3WEEKS
     Route: 042
     Dates: start: 20230614
  2. ADCETRIS [Suspect]
     Active Substance: BRENTUXIMAB VEDOTIN
     Dosage: 3 DF, CYCLIC; 3 VIALS PER CYCLE Q3WEEKS
     Route: 042
     Dates: end: 20230923

REACTIONS (5)
  - Death [Fatal]
  - Decreased immune responsiveness [Not Recovered/Not Resolved]
  - Sepsis [Not Recovered/Not Resolved]
  - Pyrexia [Not Recovered/Not Resolved]
  - Haemoglobin decreased [Not Recovered/Not Resolved]
